FAERS Safety Report 12067812 (Version 1)
Quarter: 2016Q1

REPORT INFORMATION
  Report Type: Spontaneous
  Country: FR (occurrence: FR)
  Receive Date: 20160210
  Receipt Date: 20160210
  Transmission Date: 20160526
  Serious: Yes (Other)
  Sender: FDA-Public Use
  Company Number: FR-ROCHE-1708612

PATIENT
  Age: 15 Year
  Sex: Female

DRUGS (5)
  1. INIPOMP [Concomitant]
     Active Substance: PANTOPRAZOLE SODIUM
  2. CORTANCYL [Concomitant]
     Active Substance: PREDNISONE
  3. MUCOMYST [Concomitant]
     Active Substance: ACETYLCYSTEINE
  4. XOLAIR [Suspect]
     Active Substance: OMALIZUMAB
     Indication: ASTHMA
     Dosage: 4 DF
     Route: 058
     Dates: start: 201509
  5. BRICANYL [Concomitant]
     Active Substance: TERBUTALINE SULFATE

REACTIONS (2)
  - Systemic lupus erythematosus [Not Recovered/Not Resolved]
  - Renal disorder [Not Recovered/Not Resolved]

NARRATIVE: CASE EVENT DATE: 201601
